FAERS Safety Report 10724288 (Version 1)
Quarter: 2015Q1

REPORT INFORMATION
  Report Type: Spontaneous
  Country: FR (occurrence: FR)
  Receive Date: 20150120
  Receipt Date: 20150120
  Transmission Date: 20150721
  Serious: Yes (Hospitalization)
  Sender: FDA-Public Use
  Company Number: FR-PFIZER INC-2015014476

PATIENT
  Age: 57 Year
  Sex: Female

DRUGS (2)
  1. AMOXICILLIN. [Suspect]
     Active Substance: AMOXICILLIN
     Indication: ASTHMA
     Dosage: UNK, SINGLE
     Route: 048
     Dates: start: 20141201, end: 20141201
  2. RHINADVIL [Suspect]
     Active Substance: IBUPROFEN\PSEUDOEPHEDRINE HYDROCHLORIDE
     Indication: ASTHMA
     Dosage: UNK, SINGLE
     Route: 048
     Dates: start: 20141201, end: 20141201

REACTIONS (2)
  - Dyspnoea [Recovered/Resolved]
  - Rash erythematous [Recovered/Resolved]

NARRATIVE: CASE EVENT DATE: 20141201
